FAERS Safety Report 7064658-3 (Version None)
Quarter: 2010Q4

REPORT INFORMATION
  Report Type: 
  Country: None (occurrence: None)
  Receive Date: 20101025
  Receipt Date: 20101025
  Transmission Date: 20110411
  Serious: Yes (Life-Threatening)
  Sender: FDA-Public Use
  Company Number: None

PATIENT
  Age: 45 Year
  Sex: Female
  Weight: 77.1115 kg

DRUGS (2)
  1. REBIF [Suspect]
     Dosage: 44 MCG 3 TIMES/WEEK SC
     Route: 058
     Dates: start: 20090226, end: 20100727
  2. NEURONTIN [Concomitant]

REACTIONS (1)
  - PRURITUS [None]
